FAERS Safety Report 4471563-5 (Version None)
Quarter: 2004Q4

REPORT INFORMATION
  Report Type: 
  Country: None (occurrence: None)
  Receive Date: 20041012
  Receipt Date: 20041006
  Transmission Date: 20050328
  Serious: Yes (Death, Hospitalization)
  Sender: FDA-Public Use
  Company Number: PE-GLAXOSMITHKLINE-A0528918A

PATIENT
  Age: 20 Year
  Sex: Female

DRUGS (5)
  1. ALBENDAZOLE [Suspect]
     Indication: NEUROCYSTICERCOSIS
     Dosage: 1G TWICE PER DAY
     Route: 048
     Dates: start: 20041003, end: 20041005
  2. PHENYTOIN [Concomitant]
     Dosage: 300MG PER DAY
     Route: 048
  3. PREDNISONE [Concomitant]
     Dosage: 60MG PER DAY
     Dates: start: 20040930, end: 20041005
  4. OMEPRAZOLE [Concomitant]
     Dosage: 20MG PER DAY
     Dates: start: 20040929, end: 20041005
  5. PHENYTOIN [Concomitant]
     Dosage: 100MG THREE TIMES PER DAY
     Dates: start: 20040929, end: 20041005

REACTIONS (7)
  - CARDIO-RESPIRATORY ARREST [None]
  - CONVULSION [None]
  - HEADACHE [None]
  - LOSS OF CONSCIOUSNESS [None]
  - MUSCLE DISORDER [None]
  - VOMITING [None]
  - YAWNING [None]
